FAERS Safety Report 8020310-9 (Version None)
Quarter: 2012Q1

REPORT INFORMATION
  Report Type: 
  Country: None (occurrence: None)
  Receive Date: 20120103
  Receipt Date: 20111230
  Transmission Date: 20120608
  Serious: Yes (Hospitalization, Other)
  Sender: FDA-Public Use
  Company Number: US-AMGEN-USASP2011061915

PATIENT
  Age: 38 Year
  Sex: Female

DRUGS (10)
  1. DILAUDID [Concomitant]
     Dosage: UNK
     Dates: start: 20110801
  2. LACTULOSE [Concomitant]
     Dosage: UNK
     Dates: start: 20111218
  3. SOMA [Concomitant]
     Dosage: UNK
     Dates: start: 20110803
  4. MELOXICAM [Suspect]
     Dosage: UNK
     Dates: start: 20111024
  5. ENBREL [Suspect]
     Indication: RHEUMATOID ARTHRITIS
     Dosage: 50 MG, QWK
     Route: 058
     Dates: start: 20111010
  6. METHOTREXATE [Concomitant]
     Dosage: UNK
     Dates: start: 20111208
  7. ENBREL [Suspect]
     Indication: VASCULITIS
  8. TIZANIDINE HCL [Concomitant]
     Dosage: UNK
     Dates: start: 20111024
  9. PREDNISONE TAB [Suspect]
     Dosage: UNK
     Dates: start: 20110801
  10. NSAID'S [Concomitant]
     Dosage: UNK

REACTIONS (5)
  - GASTRIC BYPASS [None]
  - PEPTIC ULCER HAEMORRHAGE [None]
  - MALABSORPTION [None]
  - INCREASED TENDENCY TO BRUISE [None]
  - INJECTION SITE HAEMATOMA [None]
